FAERS Safety Report 9131086 (Version 3)
Quarter: 2014Q1

REPORT INFORMATION
  Report Type: Spontaneous
  Country: TR (occurrence: TR)
  Receive Date: 20130301
  Receipt Date: 20140305
  Transmission Date: 20141002
  Serious: Yes (Other)
  Sender: FDA-Public Use
  Company Number: TR-AMGEN-TURSP2013014025

PATIENT
  Age: 8 Year
  Sex: Male
  Weight: 31 kg

DRUGS (1)
  1. ENBREL [Suspect]
     Indication: JUVENILE IDIOPATHIC ARTHRITIS
     Dosage: 25 MG, CYCLIC; ONCE IN 10 DAYS
     Route: 058
     Dates: start: 20101224

REACTIONS (9)
  - Constipation [Unknown]
  - Pyrexia [Unknown]
  - Joint swelling [Not Recovered/Not Resolved]
  - Drug ineffective [Not Recovered/Not Resolved]
  - Injection site abscess [Unknown]
  - Abscess [Not Recovered/Not Resolved]
  - Tooth infection [Unknown]
  - Pharyngitis [Recovered/Resolved]
  - Injection site induration [Not Recovered/Not Resolved]
